FAERS Safety Report 15073634 (Version 1)
Quarter: 2018Q2

REPORT INFORMATION
  Report Type: Spontaneous
  Country: US (occurrence: US)
  Receive Date: 20180627
  Receipt Date: 20180627
  Transmission Date: 20180711
  Serious: No
  Sender: FDA-Public Use
  Company Number: US-TEVA-2018-US-912973

PATIENT
  Sex: Female

DRUGS (1)
  1. BUPROPION. [Suspect]
     Active Substance: BUPROPION
     Dosage: 300 MILLIEQUIVALENTS DAILY;
     Route: 065

REACTIONS (3)
  - Product availability issue [Unknown]
  - Therapy change [Unknown]
  - Medication residue present [Unknown]
